FAERS Safety Report 21848857 (Version 1)
Quarter: 2023Q1

REPORT INFORMATION
  Report Type: Other
  Country: None (occurrence: US)
  Receive Date: 20230111
  Receipt Date: 20230111
  Transmission Date: 20230417
  Serious: Yes (Other)
  Sender: FDA-Public Use
  Company Number: US-Fagron Sterile Services-2136588

PATIENT
  Age: 62 Year
  Sex: Male
  Weight: 84.9 kg

DRUGS (1)
  1. ARGININE\LYSINE [Suspect]
     Active Substance: ARGININE\LYSINE

REACTIONS (1)
  - Injection site erythema [None]
